FAERS Safety Report 23588395 (Version 1)
Quarter: 2024Q1

REPORT INFORMATION
  Report Type: Spontaneous
  Country: IT (occurrence: IT)
  Receive Date: 20240302
  Receipt Date: 20240302
  Transmission Date: 20240409
  Serious: Yes (Hospitalization)
  Sender: FDA-Public Use
  Company Number: None

PATIENT
  Age: 75 Year
  Sex: Female
  Weight: 60 kg

DRUGS (5)
  1. PACLITAXEL [Suspect]
     Active Substance: PACLITAXEL
     Indication: Uterine cancer
     Dosage: 230 MG IN 500ML OF NACL IN 180 MINUTES
     Dates: start: 20240130, end: 20240130
  2. LORATADINE [Concomitant]
     Active Substance: LORATADINE
     Indication: Chemotherapy side effect prophylaxis
     Dosage: 10MG X 1 TIME/DAY
     Dates: start: 20240130, end: 20240130
  3. CARBOPLATIN [Concomitant]
     Active Substance: CARBOPLATIN
     Indication: Uterine cancer
     Dosage: 350MG IN 500ML OF GLUCOSE INFUSION
     Dates: start: 20240130, end: 20240130
  4. ONDANSETRON [Concomitant]
     Active Substance: ONDANSETRON
     Indication: Chemotherapy side effect prophylaxis
     Dosage: 8MG IN 100ML OF NACL INFUSION
     Dates: start: 20240130, end: 20240130
  5. DECADRON [Concomitant]
     Active Substance: DEXAMETHASONE
     Indication: Chemotherapy side effect prophylaxis
     Dosage: 20 MG INFUSION
     Dates: start: 20240130, end: 20240130

REACTIONS (3)
  - Depressed level of consciousness [Recovered/Resolved]
  - Throat tightness [Recovered/Resolved]
  - Dyspnoea [Recovered/Resolved]

NARRATIVE: CASE EVENT DATE: 20240130
